FAERS Safety Report 9990105 (Version 1)
Quarter: 2014Q1

REPORT INFORMATION
  Report Type: Spontaneous
  Country: US (occurrence: None)
  Receive Date: 20140123
  Receipt Date: 20140123
  Transmission Date: 20141002
  Serious: Yes (Hospitalization)
  Sender: FDA-Public Use
  Company Number: UTC-036693

PATIENT
  Age: 72 Year
  Sex: Male
  Weight: 75 kg

DRUGS (2)
  1. REMODULIN (5 MILLIGRAM/ MILLILITERS, INJECTION FOR INFUSION) (TREPROSTINIL SODIUM) [Suspect]
     Indication: PULMONARY ARTERIAL HYPERTENSION
     Dosage: 61.92 UG/KG (0.043 UG/KG, 1 IN 1 MIN)
     Route: 058
     Dates: start: 20130426
  2. ADCIRCA (TADALAFIL) [Concomitant]

REACTIONS (1)
  - Dyspnoea [None]
